FAERS Safety Report 12711713 (Version 1)
Quarter: 2016Q3

REPORT INFORMATION
  Report Type: Spontaneous
  Country: US (occurrence: US)
  Receive Date: 20160902
  Receipt Date: 20160902
  Transmission Date: 20161109
  Serious: Yes (Other)
  Sender: FDA-Public Use
  Company Number: None

PATIENT
  Age: 38 Year
  Sex: Female

DRUGS (33)
  1. ZYRTEC [Concomitant]
     Active Substance: CETIRIZINE HYDROCHLORIDE
  2. CYCLOBENZAPRINE (FLEXERIL) [Concomitant]
  3. DIPHENHYDRAMINE (BENADRYL) [Concomitant]
  4. EPINEPHRINE (PF) [Concomitant]
  5. ZOFRAN ODT [Concomitant]
     Active Substance: ONDANSETRON HYDROCHLORIDE
  6. RANITIDINE. [Concomitant]
     Active Substance: RANITIDINE
  7. DELTASONE [Concomitant]
     Active Substance: PREDNISONE
  8. HEPARIN [Concomitant]
     Active Substance: HEPARIN SODIUM
  9. METHOTREXATE (TREXALL) [Concomitant]
  10. BELIMUMAB [Suspect]
     Active Substance: BELIMUMAB
     Indication: SYSTEMIC LUPUS ERYTHEMATOSUS
     Route: 042
     Dates: start: 20160608
  11. METHYLPREDNISOLONE. [Concomitant]
     Active Substance: METHYLPREDNISOLONE
  12. KETOCONAZOLE (NIZORAL) [Concomitant]
  13. ACETAMINOPHEN. [Concomitant]
     Active Substance: ACETAMINOPHEN
  14. ALBUTEROL (PROAIR HFA) [Concomitant]
  15. CLOBETASOL (TEMOVATE) [Concomitant]
  16. DICLOFENAC SODIUM (VOLTAREN) [Concomitant]
  17. QUINACRINE [Concomitant]
     Active Substance: QUINACRINE
  18. EFFEXOR [Concomitant]
     Active Substance: VENLAFAXINE HYDROCHLORIDE
  19. LASIX [Concomitant]
     Active Substance: FUROSEMIDE
  20. NEURONTIN [Concomitant]
     Active Substance: GABAPENTIN
  21. HYDROCHLOROTHIAZIDE. [Concomitant]
     Active Substance: HYDROCHLOROTHIAZIDE
  22. HYDROCODONE-ACETAMINOPEN (VICODIN ES) [Concomitant]
  23. MIRALAX [Concomitant]
     Active Substance: POLYETHYLENE GLYCOL 3350
  24. POTASSIUM CITRATE (UROCIT-K 10) [Concomitant]
  25. DIPHENHYDRAMINE. [Concomitant]
     Active Substance: DIPHENHYDRAMINE
  26. SODIUM CHLORIDE. [Concomitant]
     Active Substance: SODIUM CHLORIDE
  27. XANAX [Concomitant]
     Active Substance: ALPRAZOLAM
  28. FLUOCINONIDE. [Concomitant]
     Active Substance: FLUOCINONIDE
  29. FOLIC ACID (FOLATE) [Concomitant]
  30. LIDOCAINE. [Concomitant]
     Active Substance: LIDOCAINE
  31. MAGNESIUM OXIDE. [Concomitant]
     Active Substance: MAGNESIUM OXIDE
  32. THEOPHYLLINE [Concomitant]
     Active Substance: THEOPHYLLINE ANHYDROUS
  33. ASPIRIN. [Concomitant]
     Active Substance: ASPIRIN

REACTIONS (3)
  - Infusion related reaction [None]
  - Hypersensitivity [None]
  - Pruritus [None]
